FAERS Safety Report 5763555-0 (Version None)
Quarter: 2008Q2

REPORT INFORMATION
  Report Type: 
  Country: None (occurrence: None)
  Receive Date: 20080610
  Receipt Date: 20080529
  Transmission Date: 20081010
  Serious: Yes (Hospitalization, Other)
  Sender: FDA-Public Use
  Company Number: GB-JNJFOC-20080600135

PATIENT
  Age: 6 Decade
  Sex: Female
  Weight: 60 kg

DRUGS (7)
  1. REMICADE [Suspect]
     Route: 042
  2. REMICADE [Suspect]
     Indication: RHEUMATOID ARTHRITIS
     Route: 042
  3. AZATHIOPRINE [Concomitant]
  4. VITAMIN B-12 [Concomitant]
  5. ACETAMINOPHEN W/ CODEINE [Concomitant]
  6. NAPROXEN [Concomitant]
  7. METHOTREXATE [Concomitant]

REACTIONS (1)
  - MIGRAINE [None]
